FAERS Safety Report 8559334-1 (Version None)
Quarter: 2012Q3

REPORT INFORMATION
  Report Type: 
  Country: None (occurrence: None)
  Receive Date: 20120802
  Receipt Date: 20120731
  Transmission Date: 20120928
  Serious: Yes (Hospitalization)
  Sender: FDA-Public Use
  Company Number: PHHY2012CA065374

PATIENT
  Sex: Female

DRUGS (1)
  1. SANDOSTATIN LAR [Suspect]
     Indication: NEUROENDOCRINE TUMOUR
     Dosage: 30 MG, QMO
     Route: 030
     Dates: start: 20120327

REACTIONS (5)
  - INTESTINAL OBSTRUCTION [None]
  - FEELING ABNORMAL [None]
  - APHAGIA [None]
  - VOMITING [None]
  - ABDOMINAL PAIN [None]
